FAERS Safety Report 7618717-4 (Version None)
Quarter: 2011Q3

REPORT INFORMATION
  Report Type: 
  Country: None (occurrence: None)
  Receive Date: 20110718
  Receipt Date: 20110711
  Transmission Date: 20111222
  Serious: Yes (Other)
  Sender: FDA-Public Use
  Company Number: US-GENENTECH-320623

PATIENT
  Age: 67 Year
  Sex: Female

DRUGS (8)
  1. RITUXIMAB [Suspect]
     Indication: B-CELL LYMPHOMA
     Dosage: 375 MG/M2, UNK
     Route: 042
     Dates: start: 20090507, end: 20090605
  2. CYCLOPHOSPHAMIDE [Suspect]
     Indication: B-CELL LYMPHOMA
     Dosage: 1000 MG/M2, Q14D
     Route: 042
     Dates: start: 20090508, end: 20090618
  3. PREDNISONE [Suspect]
     Indication: B-CELL LYMPHOMA
     Dosage: 100 MG, UNK
     Route: 048
     Dates: start: 20090509, end: 20090623
  4. DOXORUBICIN HCL [Suspect]
     Indication: B-CELL LYMPHOMA
     Dosage: 50 MG/M2, Q14D
     Route: 042
     Dates: start: 20090508, end: 20090618
  5. ETOPOSIDE [Suspect]
     Indication: B-CELL LYMPHOMA
     Dosage: 100 MG/M2, Q2W
     Route: 042
     Dates: start: 20090723, end: 20090829
  6. VINCRISTINE [Suspect]
     Indication: B-CELL LYMPHOMA
     Dosage: 1.4 MG/M2, Q14D
     Route: 042
     Dates: start: 20090508, end: 20090618
  7. IFOSFAMIDE [Suspect]
     Indication: B-CELL LYMPHOMA
     Dosage: 5 G/M2, Q2W
     Route: 042
     Dates: start: 20090723, end: 20090829
  8. CARBOPLATIN [Suspect]
     Indication: B-CELL LYMPHOMA
     Dosage: UNK
     Route: 042
     Dates: start: 20090723, end: 20090829

REACTIONS (1)
  - ACUTE MYELOID LEUKAEMIA [None]
